FAERS Safety Report 13688868 (Version 1)
Quarter: 2017Q2

REPORT INFORMATION
  Report Type: Spontaneous
  Country: US (occurrence: US)
  Receive Date: 20170626
  Receipt Date: 20170626
  Transmission Date: 20170830
  Serious: No
  Sender: FDA-Public Use
  Company Number: US-BAYER-2017-113230

PATIENT
  Age: 52 Year
  Sex: Female
  Weight: 71.97 kg

DRUGS (1)
  1. ALEVE [Suspect]
     Active Substance: NAPROXEN SODIUM
     Indication: HEADACHE
     Dosage: 1 DF, UNK
     Route: 048
     Dates: start: 201706

REACTIONS (2)
  - Medication error [Unknown]
  - Product commingling [Unknown]

NARRATIVE: CASE EVENT DATE: 201706
